FAERS Safety Report 6632190-4 (Version None)
Quarter: 2010Q1

REPORT INFORMATION
  Report Type: 
  Country: None (occurrence: None)
  Receive Date: 20100312
  Receipt Date: 20100304
  Transmission Date: 20100710
  Serious: Yes (Congenital Anomaly)
  Sender: FDA-Public Use
  Company Number: US-CEPHALON-2010001312

PATIENT
  Sex: Male
  Weight: 3 kg

DRUGS (7)
  1. PROVIGIL [Suspect]
     Route: 064
     Dates: start: 20090101
  2. LEVOTHYROXINE [Suspect]
     Dates: start: 20090101
  3. METFORMIN HCL [Suspect]
     Dates: start: 20090101
  4. BUSPAR [Suspect]
     Dates: start: 20090101
  5. LEXAPRO [Suspect]
     Dates: start: 20090101
  6. NASONEX [Suspect]
     Dates: start: 20090101
  7. OB NATAL [Suspect]
     Dates: start: 20090101

REACTIONS (2)
  - TRANSPOSITION OF THE GREAT VESSELS [None]
  - VENTRICULAR SEPTAL DEFECT [None]
